FAERS Safety Report 4873835-9 (Version None)
Quarter: 2006Q1

REPORT INFORMATION
  Report Type: 
  Country: None (occurrence: None)
  Receive Date: 20060104
  Receipt Date: 20051222
  Transmission Date: 20060701
  Serious: Yes (Other)
  Sender: FDA-Public Use
  Company Number: 006332

PATIENT
  Sex: Female

DRUGS (4)
  1. MEDROXYPROGESTERONE ACETTE (MEDROXYPROGESTERONE ACETATE) TABLET, 10MG [Suspect]
     Dosage: ORAL
     Route: 048
     Dates: start: 19890101, end: 20010101
  2. PREMARIN [Suspect]
     Dosage: ORAL
     Route: 048
     Dates: start: 19890101, end: 20010101
  3. PREMPRO [Suspect]
     Dosage: ORAL
     Route: 048
     Dates: start: 19890101, end: 20010101
  4. PROVERA [Suspect]
     Dosage: ORAL
     Route: 048
     Dates: start: 19890101, end: 20010101

REACTIONS (2)
  - BREAST CANCER FEMALE [None]
  - BREAST CANCER IN SITU [None]
